FAERS Safety Report 19739591 (Version 1)
Quarter: 2021Q3

REPORT INFORMATION
  Report Type: Spontaneous
  Country: LU (occurrence: LU)
  Receive Date: 20210823
  Receipt Date: 20210823
  Transmission Date: 20211014
  Serious: Yes (Hospitalization)
  Sender: FDA-Public Use
  Company Number: LU-ASTRAZENECA-2021A675407

PATIENT
  Age: 48 Year
  Sex: Female
  Weight: 95 kg

DRUGS (12)
  1. CIRCADIN [Concomitant]
     Active Substance: MELATONIN
     Dosage: 1.0MG UNKNOWN
  2. PANTOMED [Concomitant]
     Indication: DYSPEPSIA
  3. TRYPTOCALM [Concomitant]
     Dosage: 250.0MG UNKNOWN
  4. EUTHYROX [Concomitant]
     Active Substance: LEVOTHYROXINE SODIUM
     Indication: HYPOTHYROIDISM
     Dosage: 150.0UG/INHAL UNKNOWN
     Route: 048
  5. FORXIGA [Suspect]
     Active Substance: DAPAGLIFLOZIN
     Indication: TYPE 1 DIABETES MELLITUS
     Route: 048
     Dates: start: 202003, end: 20210720
  6. PICOLINATE DE CHROME [Concomitant]
     Dosage: 100.0MG UNKNOWN
  7. DOPACONTROLE (PHY 109) ? COMPLEMENT ALIMENTAIRE [Concomitant]
     Dosage: 1.0DF UNKNOWN
  8. TOUJEO [Suspect]
     Active Substance: INSULIN GLARGINE
     Indication: TYPE 1 DIABETES MELLITUS
     Route: 065
     Dates: start: 202003
  9. ZINC L?CARNOSINE, L?GLUTAMINE, PROBIOTICAL D [Concomitant]
     Dosage: 1.0DF UNKNOWN
  10. HUMALOG [Suspect]
     Active Substance: INSULIN LISPRO
     Indication: TYPE 1 DIABETES MELLITUS
     Dosage: 28.0IU UNKNOWN
     Route: 065
  11. RIOPAN [Concomitant]
     Indication: DYSPEPSIA
  12. ULTRAMG [Concomitant]
     Dosage: 1.0DF UNKNOWN

REACTIONS (3)
  - Euglycaemic diabetic ketoacidosis [Recovering/Resolving]
  - Vomiting [Recovering/Resolving]
  - Abdominal pain upper [Recovering/Resolving]

NARRATIVE: CASE EVENT DATE: 202107
